FAERS Safety Report 15906310 (Version 1)
Quarter: 2019Q1

REPORT INFORMATION
  Report Type: Spontaneous
  Country: US (occurrence: US)
  Receive Date: 20190203
  Receipt Date: 20190203
  Transmission Date: 20190417
  Serious: Yes (Other)
  Sender: FDA-Public Use
  Company Number: None

PATIENT
  Age: 26 Year
  Sex: Female
  Weight: 119.7 kg

DRUGS (8)
  1. EMGALITY [Suspect]
     Active Substance: GALCANEZUMAB-GNLM
     Indication: MIGRAINE
     Dosage: ?          QUANTITY:2 INJECTION(S);OTHER FREQUENCY:1 MONTH;?
     Route: 058
  2. MELATONIN [Concomitant]
     Active Substance: MELATONIN
  3. WOMENS MULTIVITAMIN [Concomitant]
  4. CYMBALTA [Concomitant]
     Active Substance: DULOXETINE HYDROCHLORIDE
  5. LITHIUM. [Concomitant]
     Active Substance: LITHIUM
  6. NEXPLANON [Concomitant]
     Active Substance: ETONOGESTREL
  7. TUMERIC [Concomitant]
     Active Substance: HERBALS\TURMERIC
  8. B2 [Concomitant]

REACTIONS (3)
  - Drug ineffective [None]
  - Migraine [None]
  - Injection site pain [None]

NARRATIVE: CASE EVENT DATE: 20190121
